FAERS Safety Report 12194647 (Version 2)
Quarter: 2016Q1

REPORT INFORMATION
  Report Type: Spontaneous
  Country: US (occurrence: US)
  Receive Date: 20160321
  Receipt Date: 20160323
  Transmission Date: 20160526
  Serious: Yes (Other)
  Sender: FDA-Public Use
  Company Number: US-PFIZER INC-2016158769

PATIENT
  Age: 56 Year
  Sex: Female
  Weight: 57 kg

DRUGS (2)
  1. ESTRING [Suspect]
     Active Substance: ESTRADIOL
     Indication: VULVOVAGINAL DRYNESS
     Dosage: 2 MG, UNK
     Route: 067
     Dates: start: 2000
  2. ESTRADIOL. [Suspect]
     Active Substance: ESTRADIOL
     Dosage: 10 MG (1 PILL), 2X/DAY (1 IN THE MORNING AND 1 AT NIGHT)
     Dates: end: 20150219

REACTIONS (1)
  - Thrombosis [Unknown]
